FAERS Safety Report 20889527 (Version 1)
Quarter: 2022Q2

REPORT INFORMATION
  Report Type: Spontaneous
  Country: GB (occurrence: GB)
  Receive Date: 20220530
  Receipt Date: 20220530
  Transmission Date: 20220720
  Serious: Yes (Other)
  Sender: FDA-Public Use
  Company Number: GB-AMGEN-GBRSP2022089741

PATIENT
  Age: 74 Year
  Sex: Female

DRUGS (1)
  1. CARFILZOMIB [Suspect]
     Active Substance: CARFILZOMIB
     Indication: Plasma cell myeloma refractory
     Dosage: ON DAY 15 OF CYCLE 19
     Route: 065

REACTIONS (3)
  - Fall [Unknown]
  - Thrombotic microangiopathy [Recovered/Resolved]
  - Haemorrhage intracranial [Recovered/Resolved]
